FAERS Safety Report 6756776-1 (Version None)
Quarter: 2010Q2

REPORT INFORMATION
  Report Type: 
  Country: None (occurrence: None)
  Receive Date: 20100524
  Receipt Date: 20100209
  Transmission Date: 20101027
  Serious: No
  Sender: FDA-Public Use
  Company Number: 006777

PATIENT
  Sex: Female

DRUGS (2)
  1. CIMZIA [Suspect]
     Indication: CROHN'S DISEASE
     Dosage: (400 MG SUBCUTANEUOUS)
     Route: 057
     Dates: start: 20090825
  2. EFFEXOR [Suspect]
     Dosage: (75 MG)
     Dates: start: 20100207, end: 20100208

REACTIONS (5)
  - ARTHRALGIA [None]
  - ERYTHEMA [None]
  - HEADACHE [None]
  - NAUSEA [None]
  - VOMITING [None]
